FAERS Safety Report 20142625 (Version 1)
Quarter: 2021Q4

REPORT INFORMATION
  Report Type: Spontaneous
  Country: US (occurrence: None)
  Receive Date: 20211202
  Receipt Date: 20211202
  Transmission Date: 20220303
  Serious: No
  Sender: FDA-Public Use
  Company Number: US-ROCHE-2115132

PATIENT
  Sex: Female

DRUGS (27)
  1. VALIUM [Suspect]
     Active Substance: DIAZEPAM
     Indication: Product used for unknown indication
     Route: 065
  2. ALECENSA [Suspect]
     Active Substance: ALECTINIB HYDROCHLORIDE
     Indication: Breast cancer female
     Dosage: TAKE 4 CAPSULE(S) BY MOUTH TWICE A DAY
     Route: 048
  3. ALECENSA [Suspect]
     Active Substance: ALECTINIB HYDROCHLORIDE
     Indication: Lung neoplasm malignant
  4. KLONOPIN [Suspect]
     Active Substance: CLONAZEPAM
     Indication: Generalised anxiety disorder
     Route: 048
  5. ARIMIDEX [Concomitant]
     Active Substance: ANASTROZOLE
     Indication: Breast cancer female
     Route: 048
  6. ZOLPIDEM [Concomitant]
     Active Substance: ZOLPIDEM TARTRATE
     Indication: Insomnia
     Dosage: TAKE ONE AND HALF TABLET BY MOUTH AT BEDTIME AS NEEDED FOR SLEEP
     Route: 048
  7. MORPHINE [Concomitant]
     Active Substance: MORPHINE
     Indication: Metastases to bone
     Dosage: TAKE 1 TABLET BY MOUTH EVERY 6 HOURS AS NEEDED
     Route: 048
  8. MORPHINE [Concomitant]
     Active Substance: MORPHINE
     Indication: Breast cancer female
  9. TYLENOL EXTRA STRENGTH [Concomitant]
     Active Substance: ACETAMINOPHEN
     Dosage: TAKE 500 MG TABLET BY MOUTH EVERY 6 HOURS AS NEEDED
     Route: 048
  10. NEURONTIN [Concomitant]
     Active Substance: GABAPENTIN
     Indication: Neuralgia
     Route: 048
  11. NORVASC [Concomitant]
     Active Substance: AMLODIPINE BESYLATE
     Indication: Hypertension
     Route: 048
  12. POTASSIUM CHLORIDE [Concomitant]
     Active Substance: POTASSIUM CHLORIDE
     Indication: Hypokalaemia
     Route: 048
  13. LEVOTHYROXINE [Concomitant]
     Active Substance: LEVOTHYROXINE
     Indication: Hypothyroidism
     Dosage: 75 MCG?TAKE ONE AND HALF TABLET BY MOUTH DAILY
     Route: 048
  14. REMERON [Concomitant]
     Active Substance: MIRTAZAPINE
     Dosage: TAKE 1 TABLET BY MOUTH EVERY DAY AT BEDTIME
     Route: 048
  15. DIPHENHYDRAMINE [Concomitant]
     Active Substance: DIPHENHYDRAMINE
     Indication: Mucosal inflammation
     Dosage: TAKE 5 ML ORALLY, SWISH THEN SPLIT FOUR TIMES DAILY
     Route: 048
  16. FLEXERIL [Concomitant]
     Active Substance: CYCLOBENZAPRINE HYDROCHLORIDE
     Indication: Muscle spasms
     Dosage: TAKE 1 TABLET BY MOUTH 3 TIMES A DAY AS NEEDED
     Route: 048
  17. FLEXERIL [Concomitant]
     Active Substance: CYCLOBENZAPRINE HYDROCHLORIDE
     Indication: Back pain
  18. BENADRYL [Concomitant]
     Active Substance: DIPHENHYDRAMINE HYDROCHLORIDE
     Dosage: SWISH AND SPLIT 1 TEASPOONFULS (5 ML) BY MOUTH 4 TIMES A DAY
     Route: 048
  19. ZOFRAN [Concomitant]
     Active Substance: ONDANSETRON HYDROCHLORIDE
     Indication: Generalised anxiety disorder
     Dosage: TAKE 1 TABLET BY MOUTH EVERY 8 HOURS AS NEEDED FOR NAUSEA
     Route: 048
  20. ZOFRAN [Concomitant]
     Active Substance: ONDANSETRON HYDROCHLORIDE
     Indication: Nausea
  21. TRIAMTERENE [Concomitant]
     Active Substance: TRIAMTERENE
     Dosage: 37.5 MG/25 MG
     Route: 048
  22. SYMBICORT [Concomitant]
     Active Substance: BUDESONIDE\FORMOTEROL FUMARATE DIHYDRATE
     Indication: Chronic obstructive pulmonary disease
     Dosage: INHALE 2 BUFFS BY MOUTH TWICE DAILY
     Route: 048
  23. VENTOLIN HFA [Concomitant]
     Active Substance: ALBUTEROL SULFATE
     Indication: Wheezing
     Dosage: INHALE 2 BUFFS BY MOUTH EVERY 4 TO 6 HOURS AS NEEDED
     Route: 048
  24. VENTOLIN HFA [Concomitant]
     Active Substance: ALBUTEROL SULFATE
     Indication: Cough
     Dosage: USE 1 AMPULE VIA NEBULIZER EVERY 4 HOURS AS NEEDED
  25. PRILOSEC [Concomitant]
     Active Substance: OMEPRAZOLE MAGNESIUM
     Dosage: TAKE 1 CAPSULE BY MOUTH ONCE DAILY 30 MINUTES PRIOR TO MEAL
     Route: 048
  26. FOLIC ACID [Concomitant]
     Active Substance: FOLIC ACID
     Route: 048
  27. VITAMIN D3 [Concomitant]
     Active Substance: CHOLECALCIFEROL
     Indication: Vitamin D deficiency
     Dosage: 1000 UNIT CAPSULE
     Route: 048

REACTIONS (3)
  - Drug hypersensitivity [Unknown]
  - Hypersensitivity [Unknown]
  - Off label use [Unknown]
